FAERS Safety Report 5295237-6 (Version None)
Quarter: 2007Q2

REPORT INFORMATION
  Report Type: 
  Country: None (occurrence: None)
  Receive Date: 20070412
  Receipt Date: 20070402
  Transmission Date: 20071010
  Serious: Yes (Hospitalization)
  Sender: FDA-Public Use
  Company Number: GB-PFIZER INC-2006102138

PATIENT
  Age: 43 Year
  Sex: Female
  Weight: 80 kg

DRUGS (17)
  1. LYRICA [Suspect]
     Indication: NEURALGIA
     Route: 048
     Dates: start: 20050101, end: 20060526
  2. AMITRIPTYLINE HYDROCHLORIDE [Concomitant]
     Route: 048
  3. CEPHALEXIN [Concomitant]
     Route: 048
  4. CHLORHEXIDINE HYDROCHLORIDE [Concomitant]
     Route: 061
  5. DIAZEPAM [Concomitant]
     Route: 048
  6. DIHYDROCODEINE BITARTRATE INJ [Concomitant]
     Route: 048
  7. ERYTHROMYCIN [Concomitant]
     Route: 048
  8. FUROSEMIDE [Concomitant]
     Route: 065
  9. NEOMYCIN [Concomitant]
     Route: 061
  10. NYSTATIN [Concomitant]
     Route: 048
  11. PANTOPRAZOLE [Concomitant]
     Route: 048
  12. PREDNISOLONE [Concomitant]
     Route: 048
  13. PROCHLORPERAZINE MALEATE [Concomitant]
     Route: 048
  14. SALBUTAMOL [Concomitant]
     Route: 055
  15. SALMETEROL [Concomitant]
     Route: 065
  16. FLUTICASONE PROPIONATE [Concomitant]
     Route: 055
  17. SENNA [Concomitant]
     Route: 048

REACTIONS (8)
  - ASTHMA [None]
  - COORDINATION ABNORMAL [None]
  - DIZZINESS [None]
  - DYSARTHRIA [None]
  - NEUROLOGICAL SYMPTOM [None]
  - SOMNOLENCE [None]
  - SPEECH DISORDER [None]
  - URINARY INCONTINENCE [None]
